FAERS Safety Report 8476249-8 (Version None)
Quarter: 2012Q2

REPORT INFORMATION
  Report Type: 
  Country: None (occurrence: None)
  Receive Date: 20120628
  Receipt Date: 20120625
  Transmission Date: 20120825
  Serious: No
  Sender: FDA-Public Use
  Company Number: US-PFIZER INC-2012117635

PATIENT
  Sex: Female
  Weight: 82.54 kg

DRUGS (6)
  1. NIFEDIPINE [Concomitant]
     Indication: HYPERTENSION
     Dosage: 120 MG (30MG ALONG WITH 90MG TOGETHER), DAILY
  2. CARBAMAZEPINE [Interacting]
     Indication: BURNING SENSATION
  3. LIPITOR [Suspect]
     Indication: BLOOD CHOLESTEROL INCREASED
     Dosage: 80 MG, DAILY
     Route: 048
     Dates: start: 20120424
  4. PRAVASTATIN [Concomitant]
     Dosage: UNK
  5. CARBAMAZEPINE [Interacting]
     Indication: NEUROPATHY PERIPHERAL
     Dosage: 200 MG, 4X/DAY
  6. HYDRALAZINE [Concomitant]
     Indication: HYPERTENSION
     Dosage: 50 MG, 4X/DAY

REACTIONS (2)
  - INHIBITORY DRUG INTERACTION [None]
  - BURNING SENSATION [None]
